FAERS Safety Report 10994442 (Version 1)
Quarter: 2015Q2

REPORT INFORMATION
  Report Type: Spontaneous
  Country: US (occurrence: US)
  Receive Date: 20150407
  Receipt Date: 20150407
  Transmission Date: 20150821
  Serious: No
  Sender: FDA-Public Use
  Company Number: US-PFIZER INC-2015115488

PATIENT
  Sex: Female

DRUGS (1)
  1. DOXYCYCLINE CALCIUM [Suspect]
     Active Substance: DOXYCYCLINE CALCIUM

REACTIONS (1)
  - Urticaria [Unknown]
